FAERS Safety Report 26131881 (Version 1)
Quarter: 2025Q4

REPORT INFORMATION
  Report Type: Spontaneous
  Country: TW (occurrence: TW)
  Receive Date: 20251208
  Receipt Date: 20251208
  Transmission Date: 20260118
  Serious: Yes (Other)
  Sender: PFIZER
  Company Number: TW-PFIZER INC-PV202500141275

PATIENT
  Age: 88 Year
  Sex: Male
  Weight: 56.25 kg

DRUGS (8)
  1. ZYVOX [Suspect]
     Active Substance: LINEZOLID
     Indication: Pneumonia
     Dosage: 600 MG, ONCE EVERY 12 HOURS
     Route: 041
     Dates: start: 20250821, end: 20250823
  2. ZOLPIDEM TARTRATE [Concomitant]
     Active Substance: ZOLPIDEM TARTRATE
     Indication: Insomnia
     Dosage: 10 MG, 1X/DAY
     Route: 048
     Dates: start: 20250729, end: 20250825
  3. BROTIZOLAM [Concomitant]
     Active Substance: BROTIZOLAM
     Indication: Insomnia
     Dosage: 0.375 MG, 1X/DAY
     Route: 048
     Dates: start: 20250729, end: 20250825
  4. RIVOTRIL [Concomitant]
     Active Substance: CLONAZEPAM
     Indication: Insomnia
     Dosage: 0.5 MG, 1X/DAY
     Route: 048
     Dates: start: 20250729, end: 20250825
  5. ZYPREXA ZYDIS [Concomitant]
     Active Substance: OLANZAPINE
     Indication: Insomnia
     Dosage: 5 MG, 1X/DAY
     Route: 048
     Dates: start: 20250814, end: 20250823
  6. TATUMCEF [Concomitant]
     Indication: Pneumonia
     Dosage: 1000.0 MG, 2X/DAY
     Route: 042
     Dates: start: 20250821, end: 20250829
  7. CYMBALTA [Concomitant]
     Active Substance: DULOXETINE HYDROCHLORIDE
     Indication: Insomnia
     Dosage: 33.7 MG, 2X/DAY
     Route: 048
     Dates: start: 20250814, end: 20250823
  8. CYMBALTA [Concomitant]
     Active Substance: DULOXETINE HYDROCHLORIDE
     Indication: Major depression

REACTIONS (5)
  - Clonus [Recovered/Resolved]
  - Mental status changes [Recovered/Resolved]
  - Agitation [Recovered/Resolved]
  - Serotonin syndrome [Recovered/Resolved]
  - Diarrhoea [Recovered/Resolved]

NARRATIVE: CASE EVENT DATE: 20250823
